FAERS Safety Report 7800484-2 (Version None)
Quarter: 2011Q4

REPORT INFORMATION
  Report Type: 
  Country: None (occurrence: None)
  Receive Date: 20111006
  Receipt Date: 20111004
  Transmission Date: 20120403
  Serious: No
  Sender: FDA-Public Use
  Company Number: US-TEVA-303676USA

PATIENT
  Sex: Male
  Weight: 104.42 kg

DRUGS (6)
  1. COMBIVENT [Suspect]
     Indication: CHRONIC OBSTRUCTIVE PULMONARY DISEASE
     Route: 055
     Dates: start: 20110621
  2. PROAIR HFA [Suspect]
     Indication: ASTHMA
     Route: 055
     Dates: start: 20080921
  3. PREDNISONE [Concomitant]
     Indication: ASTHMA
     Route: 048
     Dates: start: 20110830
  4. FORMOTEROL FUMARATE [Concomitant]
     Indication: ASTHMA
     Route: 055
     Dates: start: 20060101
  5. TIOPRONIN [Concomitant]
     Indication: ASTHMA
     Route: 055
     Dates: start: 20060101
  6. CICLESONIDE [Concomitant]
     Indication: ASTHMA
     Dates: start: 20060101

REACTIONS (1)
  - MUSCLE SPASMS [None]
